FAERS Safety Report 14007228 (Version 2)
Quarter: 2025Q3

REPORT INFORMATION
  Report Type: Spontaneous
  Country: US (occurrence: US)
  Receive Date: 20170925
  Receipt Date: 20250911
  Transmission Date: 20251021
  Serious: Yes (Other)
  Sender: AUROBINDO
  Company Number: US-AUROBINDO-AUR-APL-2017-40965

PATIENT
  Age: 62 Year
  Sex: Male

DRUGS (5)
  1. RIBAVIRIN [Interacting]
     Active Substance: RIBAVIRIN
     Indication: Antiviral treatment
     Route: 065
  2. PREDNISONE [Interacting]
     Active Substance: PREDNISONE
     Indication: Immunosuppressant drug therapy
     Route: 065
  3. LEDIPASVIR\SOFOSBUVIR [Interacting]
     Active Substance: LEDIPASVIR\SOFOSBUVIR
     Indication: Antiviral treatment
     Route: 065
  4. TACROLIMUS [Interacting]
     Active Substance: TACROLIMUS
     Indication: Immunosuppressant drug therapy
     Route: 065
  5. MYCOPHENOLATE MOFETIL [Interacting]
     Active Substance: MYCOPHENOLATE MOFETIL
     Indication: Immunosuppressant drug therapy
     Route: 065

REACTIONS (3)
  - Focal segmental glomerulosclerosis [Recovering/Resolving]
  - Condition aggravated [Recovering/Resolving]
  - Drug interaction [Recovering/Resolving]
